FAERS Safety Report 6122919-6 (Version None)
Quarter: 2009Q1

REPORT INFORMATION
  Report Type: 
  Country: None (occurrence: None)
  Receive Date: 20090318
  Receipt Date: 20080520
  Transmission Date: 20090719
  Serious: No
  Sender: FDA-Public Use
  Company Number: US-AMGEN-KDL278962

PATIENT
  Sex: Male
  Weight: 131.2 kg

DRUGS (4)
  1. NEULASTA [Suspect]
     Indication: CHEMOTHERAPY
     Route: 058
     Dates: start: 20080419
  2. CISPLATIN [Concomitant]
     Dates: start: 20080405, end: 20080418
  3. VINBLASTINE [Concomitant]
     Dates: start: 20080414, end: 20080418
  4. DACARBAZINE [Concomitant]
     Dates: start: 20080414, end: 20080418

REACTIONS (2)
  - PRURITUS [None]
  - RASH [None]
